FAERS Safety Report 18733397 (Version 1)
Quarter: 2021Q1

REPORT INFORMATION
  Report Type: Spontaneous
  Country: LK (occurrence: LK)
  Receive Date: 20210113
  Receipt Date: 20210113
  Transmission Date: 20210419
  Serious: Yes (Death)
  Sender: FDA-Public Use
  Company Number: LK-CADILA HEALTHCARE LIMITED-LK-ZYDUS-060570

PATIENT

DRUGS (1)
  1. METHOTREXATE. [Suspect]
     Active Substance: METHOTREXATE
     Indication: ACUTE LYMPHOCYTIC LEUKAEMIA
     Dosage: 5 GRAM PER SQUARE METRE 24?HOUR INFUSION
     Route: 065

REACTIONS (1)
  - Mucosal inflammation [Fatal]
